FAERS Safety Report 12050704 (Version 3)
Quarter: 2016Q2

REPORT INFORMATION
  Report Type: Report from Study
  Country: DE (occurrence: DE)
  Receive Date: 20160209
  Receipt Date: 20160531
  Transmission Date: 20160815
  Serious: Yes (Hospitalization)
  Sender: FDA-Public Use
  Company Number: DE-AMGEN-DEUCT2016013655

PATIENT
  Age: 58 Year
  Sex: Male

DRUGS (6)
  1. IRINOTECAN [Concomitant]
     Active Substance: IRINOTECAN
     Indication: COLORECTAL CANCER METASTATIC
     Dosage: 255 MG, UNK
     Route: 042
     Dates: start: 20150210, end: 20150616
  2. TRAMOL [Concomitant]
     Dosage: 20 MG, QID
     Route: 048
  3. CALCIUM FOLINATE [Concomitant]
     Active Substance: LEUCOVORIN CALCIUM
     Indication: COLORECTAL CANCER METASTATIC
     Dosage: 700 MG, UNK
     Route: 042
     Dates: start: 20150210, end: 20150616
  4. 5 FU [Concomitant]
     Active Substance: FLUOROURACIL
     Indication: COLORECTAL CANCER METASTATIC
     Dosage: 555 MG, UNK
     Route: 042
     Dates: start: 20150210, end: 20150616
  5. NOVALGIN [Concomitant]
     Active Substance: METAMIZOLE SODIUM
     Dosage: 20 MG, QID
     Route: 048
  6. PANITUMUMAB [Suspect]
     Active Substance: PANITUMUMAB
     Indication: COLORECTAL CANCER METASTATIC
     Dosage: 310 MG, UNK
     Route: 042
     Dates: start: 20150210, end: 20150616

REACTIONS (3)
  - Gastric ulcer [Recovered/Resolved]
  - Haematemesis [Recovered/Resolved]
  - Gastrooesophageal reflux disease [Recovered/Resolved]

NARRATIVE: CASE EVENT DATE: 20150617
